FAERS Safety Report 20594305 (Version 1)
Quarter: 2022Q1

REPORT INFORMATION
  Report Type: Spontaneous
  Country: US (occurrence: US)
  Receive Date: 20220315
  Receipt Date: 20220315
  Transmission Date: 20220424
  Serious: Yes (Other)
  Sender: FDA-Public Use
  Company Number: US-SA-SAC20220311000775

PATIENT
  Age: 42 Year
  Sex: Female

DRUGS (2)
  1. ZANTAC [Suspect]
     Active Substance: RANITIDINE HYDROCHLORIDE
     Indication: Abdominal discomfort
     Dosage: UNK, QW
     Route: 065
     Dates: start: 199812, end: 201903
  2. ZANTAC [Suspect]
     Active Substance: RANITIDINE HYDROCHLORIDE
     Indication: Dyspepsia

REACTIONS (6)
  - Breast cancer stage IV [Unknown]
  - Gastrointestinal carcinoma [Unknown]
  - Lung carcinoma cell type unspecified stage IV [Unknown]
  - Cerebrovascular accident [Unknown]
  - Disability [Unknown]
  - Bone cancer [Unknown]

NARRATIVE: CASE EVENT DATE: 20190301
